FAERS Safety Report 5689472-2 (Version None)
Quarter: 2008Q1

REPORT INFORMATION
  Report Type: 
  Country: None (occurrence: None)
  Receive Date: 20080328
  Receipt Date: 20080318
  Transmission Date: 20080703
  Serious: Yes (Hospitalization)
  Sender: FDA-Public Use
  Company Number: 2008BI007614

PATIENT
  Age: 58 Year
  Sex: Female

DRUGS (9)
  1. TYSABRI [Suspect]
     Indication: MULTIPLE SCLEROSIS
     Dosage: IV
     Route: 042
     Dates: start: 20070814
  2. ATENOLOL [Concomitant]
  3. NORTRIPTYLINE HCL [Concomitant]
  4. CALCIUM SUPPLEMENTS [Concomitant]
  5. FOLIC ACID [Concomitant]
  6. VITAMIN B COMPLEX CAP [Concomitant]
  7. MULTI-VITAMIN [Concomitant]
  8. ASPIRIN [Concomitant]
  9. WELLBUTRIN [Concomitant]

REACTIONS (2)
  - CEREBROVASCULAR ACCIDENT [None]
  - DEMYELINATION [None]
